FAERS Safety Report 5773142-6 (Version None)
Quarter: 2008Q2

REPORT INFORMATION
  Report Type: 
  Country: None (occurrence: None)
  Receive Date: 20080615
  Receipt Date: 20080325
  Transmission Date: 20081010
  Serious: No
  Sender: FDA-Public Use
  Company Number: US-BAYER-200714088BCC

PATIENT
  Age: 71 Year
  Sex: Female
  Weight: 91 kg

DRUGS (4)
  1. ALEVE (CAPLET) [Suspect]
     Indication: ARTHRITIS
     Dosage: TOTAL DAILY DOSE: 220 MG  UNIT DOSE: 220 MG
     Route: 048
  2. HIGH BLOOD PRESSURE MEDICATION [Concomitant]
  3. HIGH CHOLESTEROL MEDICATION [Concomitant]
  4. BORDERLINE DIABETIC MEDICATION [Concomitant]

REACTIONS (1)
  - RENAL FUNCTION TEST ABNORMAL [None]
